FAERS Safety Report 25378939 (Version 2)
Quarter: 2025Q2

REPORT INFORMATION
  Report Type: Report from Study
  Country: EG (occurrence: EG)
  Receive Date: 20250530
  Receipt Date: 20250605
  Transmission Date: 20250717
  Serious: Yes (Other)
  Sender: NOVARTIS
  Company Number: EG-002147023-NVSC2025EG085244

PATIENT
  Age: 81 Year
  Sex: Female

DRUGS (5)
  1. ENTRESTO [Suspect]
     Active Substance: SACUBITRIL\VALSARTAN
     Indication: Cardiac failure
     Dosage: 50 MG, BID (1/2 TAB TWICE DAILY) (CONCENTRATION: 50 MG)
     Route: 048
     Dates: start: 202305, end: 202409
  2. ENTRESTO [Suspect]
     Active Substance: SACUBITRIL\VALSARTAN
     Dosage: 100 MG, BID (1/2 TAB TWICE DAILY) (CONCENTRATION: 100 MG)
     Route: 048
     Dates: start: 202505
  3. VALSARTAN [Suspect]
     Active Substance: VALSARTAN
     Indication: Cardiac disorder
     Dosage: 80 MG, QD (1 TAB ONCE DAILY) (TABLET) (CONCENTRATION: 80 MG)
     Route: 048
     Dates: start: 202409, end: 202412
  4. VALSARTAN [Suspect]
     Active Substance: VALSARTAN
     Dosage: 80 MG, QD (1/2 TAB ONCE DAILY) (CONCENTRATION: 80 MG) (TABLET)
     Route: 048
     Dates: start: 202412, end: 202505
  5. TORSEMIDE [Suspect]
     Active Substance: TORSEMIDE
     Indication: Pulmonary oedema
     Dosage: 5 MG, QD (1 TAB ONCE DAILY) (STOPPED IN MAY 2025) (CONCENTRATION: 5 MG) (TABLET)
     Route: 048
     Dates: start: 202504

REACTIONS (7)
  - Dyspnoea [Recovered/Resolved]
  - Pulmonary oedema [Recovered/Resolved]
  - Hypotension [Recovering/Resolving]
  - Blood pressure increased [Unknown]
  - Headache [Recovering/Resolving]
  - Off label use [Unknown]
  - Wrong technique in product usage process [Unknown]

NARRATIVE: CASE EVENT DATE: 20250401
